FAERS Safety Report 10073118 (Version 1)
Quarter: 2014Q2

REPORT INFORMATION
  Report Type: Spontaneous
  Country: GB (occurrence: GB)
  Receive Date: 20140411
  Receipt Date: 20140411
  Transmission Date: 20141212
  Serious: Yes (Other)
  Sender: FDA-Public Use
  Company Number: GB-PFIZER INC-2014097494

PATIENT
  Age: 52 Year
  Sex: Female

DRUGS (1)
  1. FLUCONAZOLE [Suspect]
     Indication: CANDIDA INFECTION
     Dosage: 150 MG, 2X/WEEK
     Route: 048
     Dates: start: 20140210, end: 20140224

REACTIONS (1)
  - Bone pain [Recovered/Resolved]
